FAERS Safety Report 10583712 (Version 1)
Quarter: 2014Q4

REPORT INFORMATION
  Report Type: Spontaneous
  Country: TW (occurrence: TW)
  Receive Date: 20141114
  Receipt Date: 20141114
  Transmission Date: 20150529
  Serious: Yes (Other)
  Sender: FDA-Public Use
  Company Number: TW-CIPLA LTD.-2014TW01727

PATIENT

DRUGS (7)
  1. RADIOTHERAPY [Suspect]
     Active Substance: RADIATION THERAPY
     Indication: NASOPHARYNGEAL CANCER
  2. LEUCOVORIN [Suspect]
     Active Substance: LEUCOVORIN
     Indication: NASOPHARYNGEAL CANCER
     Dosage: 30 MG/M2, ON DAY 8, 3 WEEK CYCLE FOR 3 CYCLES
  3. 5-FLUOROURACIL [Suspect]
     Active Substance: FLUOROURACIL
     Indication: NASOPHARYNGEAL CANCER
     Dosage: 450 MG/M2, ON DAY 8, 3 WEEK CYCLE FOR 3 CYCLES
  4. EPIRUBICIN [Suspect]
     Active Substance: EPIRUBICIN
     Indication: NASOPHARYNGEAL CANCER
     Dosage: 60 MG/M2, DAY 1, 3 WEEK CYCLE FOR 3 CYCLES
  5. P-FL REGIMEN [Suspect]
     Active Substance: CISPLATIN\FLUOROURACIL\LEUCOVORIN
     Indication: NASOPHARYNGEAL CANCER
     Dosage: 60 MG/M2 3-H INFUSION+2500 MG/M2+250 MG/M2
  6. MITOMYCIN. [Suspect]
     Active Substance: MITOMYCIN
     Indication: NASOPHARYNGEAL CANCER
     Dosage: 8 MG/M2, DAY 1, 3 WEEK CYCLE FOR 3 CYCLES
  7. CISPLATIN. [Suspect]
     Active Substance: CISPLATIN
     Indication: NASOPHARYNGEAL CANCER
     Dosage: 60 MG/M2, DAY 1, 3 WEEK CYCLE FOR 3 CYCLES

REACTIONS (1)
  - Metastases to lymph nodes [Unknown]
